FAERS Safety Report 7770310-9 (Version None)
Quarter: 2011Q3

REPORT INFORMATION
  Report Type: 
  Country: None (occurrence: None)
  Receive Date: 20110922
  Receipt Date: 20110203
  Transmission Date: 20111222
  Serious: No
  Sender: FDA-Public Use
  Company Number: US-ASTRAZENECA-2011SE06140

PATIENT
  Sex: Female

DRUGS (3)
  1. SEROQUEL XR [Suspect]
     Indication: BIPOLAR DISORDER
     Route: 048
     Dates: start: 20100620, end: 20100901
  2. SEROQUEL XR [Suspect]
     Dosage: 50MG IN AFTERNOON AND 150MG AT 6PM
     Route: 048
     Dates: start: 20101101
  3. SEROQUEL XR [Suspect]
     Route: 048
     Dates: start: 20100901

REACTIONS (3)
  - INSOMNIA [None]
  - PANIC REACTION [None]
  - DRUG DOSE OMISSION [None]
